FAERS Safety Report 5494589-1 (Version None)
Quarter: 2007Q4

REPORT INFORMATION
  Report Type: 
  Country: None (occurrence: None)
  Receive Date: 20071024
  Receipt Date: 20071011
  Transmission Date: 20080405
  Serious: Yes (Hospitalization)
  Sender: FDA-Public Use
  Company Number: US-ELI_LILLY_AND_COMPANY-US200710003056

PATIENT
  Sex: Female

DRUGS (17)
  1. FORTEO [Suspect]
     Dates: start: 20071002
  2. FORTEO [Suspect]
     Dates: start: 20071008
  3. FORTEO [Suspect]
     Dates: start: 20071011
  4. VITAMIN D [Concomitant]
     Dosage: 100 IU, DAILY (1/D)
  5. TUMS [Concomitant]
     Dosage: 750 MG, 2/D
  6. ZETIA [Concomitant]
     Indication: BLOOD CHOLESTEROL
     Dosage: 10 MG, DAILY (1/D)
  7. SINGULAIR [Concomitant]
     Dosage: 10 MG, UNK
  8. PRIMIDONE [Concomitant]
     Dosage: 50 MG, DAILY (1/D)
  9. VITAMIN B-12 [Concomitant]
     Dosage: 1000 UG, DAILY (1/D)
  10. HYDROCODONE W/APAP [Concomitant]
     Indication: PAIN
     Dosage: 1000 MG, UNK
  11. FUROSEMIDE [Concomitant]
     Indication: DIURETIC THERAPY
     Dosage: 40 MG, AS NEEDED
  12. METAMUCIL [Concomitant]
     Dosage: UNK, DAILY (1/D)
  13. PSYLLIUM [Concomitant]
     Dosage: UNK, DAILY (1/D)
  14. DOCUSATE [Concomitant]
     Dosage: 100 MG, DAILY (1/D)
  15. VITAMIN E [Concomitant]
     Dosage: 400 IU, UNK
  16. BIOTIN [Concomitant]
     Dosage: 5000 UG, DAILY (1/D)
  17. MYADEC [Concomitant]
     Dosage: UNK, DAILY (1/D)

REACTIONS (2)
  - DISCOMFORT [None]
  - PROCEDURAL PAIN [None]
